FAERS Safety Report 7419832-0 (Version None)
Quarter: 2011Q2

REPORT INFORMATION
  Report Type: 
  Country: None (occurrence: None)
  Receive Date: 20110418
  Receipt Date: 20110406
  Transmission Date: 20111010
  Serious: Yes (Life-Threatening, Hospitalization)
  Sender: FDA-Public Use
  Company Number: US-JNJFOC-20110404828

PATIENT
  Age: 60 Year
  Sex: Male

DRUGS (2)
  1. MULTIPLE MEDICATIONS [Concomitant]
     Route: 065
  2. LEVAQUIN [Suspect]
     Indication: PRODUCT USED FOR UNKNOWN INDICATION
     Route: 065

REACTIONS (2)
  - HOSPITALISATION [None]
  - ADVERSE EVENT [None]
